FAERS Safety Report 24013411 (Version 2)
Quarter: 2024Q3

REPORT INFORMATION
  Report Type: Report from Study
  Country: US (occurrence: US)
  Receive Date: 20240626
  Receipt Date: 20240928
  Transmission Date: 20241017
  Serious: Yes (Hospitalization, Other)
  Sender: BOEHRINGER INGELHEIM
  Company Number: US-BoehringerIngelheim-2024-BI-017895

PATIENT
  Age: 81 Year
  Sex: Male

DRUGS (4)
  1. OFEV [Suspect]
     Active Substance: NINTEDANIB
     Indication: Idiopathic pulmonary fibrosis
     Route: 048
     Dates: start: 20220919
  2. OFEV [Suspect]
     Active Substance: NINTEDANIB
     Route: 048
  3. PROTONIX [Concomitant]
     Active Substance: PANTOPRAZOLE SODIUM
     Indication: Product used for unknown indication
  4. SUCRALFATE [Concomitant]
     Active Substance: SUCRALFATE
     Indication: Product used for unknown indication

REACTIONS (15)
  - Haematochezia [Unknown]
  - Influenza [Unknown]
  - Pneumonia [Unknown]
  - Idiopathic pulmonary fibrosis [Not Recovered/Not Resolved]
  - Chronic obstructive pulmonary disease [Not Recovered/Not Resolved]
  - Diarrhoea [Unknown]
  - Oesophageal ulcer [Unknown]
  - Diverticulitis [Unknown]
  - Hernia [Unknown]
  - Constipation [Unknown]
  - Abdominal distension [Unknown]
  - Interstitial lung disease [Not Recovered/Not Resolved]
  - Gastrointestinal motility disorder [Unknown]
  - COVID-19 [Unknown]
  - Gastrooesophageal reflux disease [Unknown]

NARRATIVE: CASE EVENT DATE: 20240201
